FAERS Safety Report 9846738 (Version 3)
Quarter: 2015Q3

REPORT INFORMATION
  Report Type: Spontaneous
  Country: US (occurrence: US)
  Receive Date: 20140127
  Receipt Date: 20150727
  Transmission Date: 20151125
  Serious: Yes (Hospitalization, Other)
  Sender: FDA-Public Use
  Company Number: US-GILEAD-2011-0047966

PATIENT
  Sex: Female

DRUGS (9)
  1. ABILIFY [Concomitant]
     Active Substance: ARIPIPRAZOLE
  2. COLACE [Concomitant]
     Active Substance: DOCUSATE SODIUM
  3. PROZAC [Concomitant]
     Active Substance: FLUOXETINE HYDROCHLORIDE
  4. COMPLERA [Suspect]
     Active Substance: EMTRICITABINE\RILPIVIRINE HYDROCHLORIDE\TENOFOVIR DISOPROXIL FUMARATE
     Indication: PRODUCT USED FOR UNKNOWN INDICATION
  5. MULTIVITAMIN                       /00097801/ [Concomitant]
     Active Substance: VITAMINS
  6. SYNTHROID [Concomitant]
     Active Substance: LEVOTHYROXINE SODIUM
  7. CLONAZEPAM. [Concomitant]
     Active Substance: CLONAZEPAM
  8. FLONASE [Concomitant]
     Active Substance: FLUTICASONE PROPIONATE
  9. CLARITIN [Concomitant]
     Active Substance: LORATADINE

REACTIONS (2)
  - Suicidal ideation [Recovered/Resolved]
  - Hyperthyroidism [Unknown]
